FAERS Safety Report 23428866 (Version 1)
Quarter: 2024Q1

REPORT INFORMATION
  Report Type: Spontaneous
  Country: CN (occurrence: CN)
  Receive Date: 20240122
  Receipt Date: 20240122
  Transmission Date: 20240410
  Serious: Yes (Other)
  Sender: FDA-Public Use
  Company Number: CN-PFIZER INC-PV202400006688

PATIENT
  Age: 44 Year
  Sex: Male
  Weight: 52 kg

DRUGS (1)
  1. FLUCONAZOLE [Suspect]
     Active Substance: FLUCONAZOLE
     Indication: Antifungal treatment
     Dosage: 200 MG, 1X/DAY
     Route: 041
     Dates: start: 20240102, end: 20240102

REACTIONS (6)
  - Seizure [Recovering/Resolving]
  - Pyrexia [Recovering/Resolving]
  - Heart rate increased [Unknown]
  - Oxygen saturation decreased [Unknown]
  - Temperature intolerance [Unknown]
  - Restlessness [Unknown]

NARRATIVE: CASE EVENT DATE: 20240102
